FAERS Safety Report 26093656 (Version 2)
Quarter: 2025Q4

REPORT INFORMATION
  Report Type: Spontaneous
  Country: US (occurrence: US)
  Receive Date: 20251126
  Receipt Date: 20251210
  Transmission Date: 20260118
  Serious: No
  Sender: CSL BEHRING
  Company Number: US-CSL-12700

PATIENT
  Age: 82 Year
  Sex: Female

DRUGS (19)
  1. PRIVIGEN [Suspect]
     Active Substance: HUMAN IMMUNOGLOBULIN G
     Indication: Product used for unknown indication
     Dosage: UNK
     Route: 065
  2. MIRALAX [Suspect]
     Active Substance: POLYETHYLENE GLYCOL 3350
  3. CHONDROITIN SULFATE A\GLUCOSAMINE [Concomitant]
     Active Substance: CHONDROITIN SULFATE A\GLUCOSAMINE
  4. VAGISIL ANTI ITCH ORIGINAL STRENGTH [Concomitant]
     Active Substance: BENZOCAINE\RESORCINOL
  5. ALLEGRA [Concomitant]
     Active Substance: FEXOFENADINE HYDROCHLORIDE
  6. FAMOTIDINE [Concomitant]
     Active Substance: FAMOTIDINE
  7. COENZYME Q10 [Concomitant]
     Active Substance: DIETARY SUPPLEMENT\UBIDECARENONE
  8. BIOTIN [Concomitant]
     Active Substance: BIOTIN
  9. OXYBUTYNIN [Concomitant]
     Active Substance: OXYBUTYNIN
  10. LOSARTAN [Concomitant]
     Active Substance: LOSARTAN
  11. AZELASTINE [Concomitant]
     Active Substance: AZELASTINE
  12. POTASSIUM CHLORIDE [Concomitant]
     Active Substance: POTASSIUM CHLORIDE
  13. ALBUTEROL SULFATE [Concomitant]
     Active Substance: ALBUTEROL SULFATE
  14. METFORMIN [Concomitant]
     Active Substance: METFORMIN HYDROCHLORIDE
  15. GEMFIBROZIL [Concomitant]
     Active Substance: GEMFIBROZIL
  16. EZETIMIBE [Concomitant]
     Active Substance: EZETIMIBE
  17. HYDROCHLOROTHIAZIDE [Concomitant]
     Active Substance: HYDROCHLOROTHIAZIDE
  18. ASPIRIN [Concomitant]
     Active Substance: ASPIRIN
  19. LEVOTHYROXINE [Concomitant]
     Active Substance: LEVOTHYROXINE

REACTIONS (3)
  - Eye pain [Unknown]
  - Ocular discomfort [Unknown]
  - Product use complaint [Unknown]
